FAERS Safety Report 17348457 (Version 1)
Quarter: 2020Q1

REPORT INFORMATION
  Report Type: Spontaneous
  Country: US (occurrence: US)
  Receive Date: 20200130
  Receipt Date: 20200130
  Transmission Date: 20200409
  Serious: No
  Sender: FDA-Public Use
  Company Number: US-TEVA-2020-US-1176801

PATIENT
  Age: 69 Year
  Sex: Female

DRUGS (5)
  1. BACLOFEN. [Concomitant]
     Active Substance: BACLOFEN
  2. FLUOXETINE [Concomitant]
     Active Substance: FLUOXETINE HYDROCHLORIDE
  3. COPAXONE [Suspect]
     Active Substance: GLATIRAMER ACETATE
     Indication: MULTIPLE SCLEROSIS
     Route: 058
     Dates: start: 20160210
  4. TIZANIDINE. [Concomitant]
     Active Substance: TIZANIDINE
  5. ROPINIROLE. [Concomitant]
     Active Substance: ROPINIROLE
     Dosage: ER

REACTIONS (1)
  - Balance disorder [Unknown]
